FAERS Safety Report 25579105 (Version 1)
Quarter: 2025Q3

REPORT INFORMATION
  Report Type: Spontaneous
  Country: EU (occurrence: EU)
  Receive Date: 20250718
  Receipt Date: 20250718
  Transmission Date: 20251021
  Serious: Yes (Hospitalization, Other)
  Sender: DR REDDYS
  Company Number: EU-RDY-POL/2025/07/010491

PATIENT
  Age: 59 Year
  Sex: Male

DRUGS (4)
  1. PREGABALIN [Suspect]
     Active Substance: PREGABALIN
     Indication: Partial seizures with secondary generalisation
  2. LAMOTRIGINE [Concomitant]
     Active Substance: LAMOTRIGINE
     Indication: Partial seizures with secondary generalisation
  3. VALPROATE [Concomitant]
     Active Substance: VALPROIC ACID
     Indication: Partial seizures with secondary generalisation
  4. OLANZAPINE [Concomitant]
     Active Substance: OLANZAPINE
     Indication: Partial seizures with secondary generalisation

REACTIONS (1)
  - Drug ineffective for unapproved indication [Unknown]
